FAERS Safety Report 8072726-2 (Version None)
Quarter: 2012Q1

REPORT INFORMATION
  Report Type: 
  Country: None (occurrence: None)
  Receive Date: 20120126
  Receipt Date: 20120117
  Transmission Date: 20120608
  Serious: Yes (Other)
  Sender: FDA-Public Use
  Company Number: CHPA2012US001580

PATIENT
  Age: 71 Year
  Sex: Female

DRUGS (2)
  1. THYROID THERAPY [Concomitant]
  2. EXCEDRIN (MIGRAINE) [Suspect]
     Indication: HEADACHE
     Dosage: 1-2 DF, PRN
     Route: 048
     Dates: end: 20120101

REACTIONS (7)
  - PALPITATIONS [None]
  - WHEEZING [None]
  - DIZZINESS [None]
  - DYSPNOEA [None]
  - UNDERDOSE [None]
  - PARAESTHESIA [None]
  - CHEST DISCOMFORT [None]
